FAERS Safety Report 4896403-1 (Version None)
Quarter: 2006Q1

REPORT INFORMATION
  Report Type: 
  Country: None (occurrence: None)
  Receive Date: 20060131
  Receipt Date: 20060119
  Transmission Date: 20060701
  Serious: Yes (Other)
  Sender: FDA-Public Use
  Company Number: FR-BRISTOL-MYERS SQUIBB COMPANY-13261714

PATIENT
  Sex: Female

DRUGS (1)
  1. ENDOXAN [Suspect]
     Indication: LYMPHOCYTIC LEUKAEMIA
     Dates: start: 20051201, end: 20051201

REACTIONS (1)
  - PLEURAL EFFUSION [None]
